FAERS Safety Report 9671681 (Version 1)
Quarter: 2013Q4

REPORT INFORMATION
  Report Type: Report from Study
  Country: US (occurrence: US)
  Receive Date: 20131106
  Receipt Date: 20131106
  Transmission Date: 20140711
  Serious: Yes (Other)
  Sender: FDA-Public Use
  Company Number: US-PURDUE-USA-2013-0108191

PATIENT
  Age: 88 Year
  Sex: Female

DRUGS (1)
  1. OXY CR TAB 5 MG [Suspect]
     Indication: PAIN
     Dosage: 20 MG, BID
     Route: 048

REACTIONS (4)
  - Colon cancer [Not Recovered/Not Resolved]
  - Drug effect increased [Unknown]
  - Sedation [Unknown]
  - Somnolence [Recovered/Resolved]
